FAERS Safety Report 17273354 (Version 1)
Quarter: 2020Q1

REPORT INFORMATION
  Report Type: Spontaneous
  Country: US (occurrence: US)
  Receive Date: 20200115
  Receipt Date: 20200115
  Transmission Date: 20200409
  Serious: Yes (Hospitalization, Other)
  Sender: FDA-Public Use
  Company Number: US-MYLANLABS-2020M1001926

PATIENT
  Sex: Female
  Weight: 95.2 kg

DRUGS (12)
  1. PREDNISONE. [Suspect]
     Active Substance: PREDNISONE
     Dosage: 10 MILLIGRAM, QD
     Dates: start: 2019
  2. FIRDAPSE [Suspect]
     Active Substance: AMIFAMPRIDINE
     Dosage: 10 MILLIGRAM, TID
     Route: 048
  3. FIRDAPSE [Suspect]
     Active Substance: AMIFAMPRIDINE
     Indication: MYASTHENIC SYNDROME
     Dosage: 20 MILLIGRAM, TID
     Route: 048
     Dates: start: 2019, end: 2019
  4. PROZAC [Concomitant]
     Active Substance: FLUOXETINE HYDROCHLORIDE
     Dosage: UNK
  5. CORTISONE [Suspect]
     Active Substance: CORTISONE
     Dosage: UNK
  6. VITAMIN D                          /00107901/ [Concomitant]
     Active Substance: ERGOCALCIFEROL
     Dosage: UNK
  7. PREDNISONE. [Suspect]
     Active Substance: PREDNISONE
     Indication: MYASTHENIC SYNDROME
     Dosage: 10 MILLIGRAM, QD
     Dates: end: 2019
  8. PREDNISONE. [Suspect]
     Active Substance: PREDNISONE
     Dosage: UNK
     Dates: start: 2019, end: 2019
  9. CALCIUM [Concomitant]
     Active Substance: CALCIUM
     Dosage: UNK
  10. LANSOPRAZOLE. [Concomitant]
     Active Substance: LANSOPRAZOLE
     Dosage: UNK
  11. ROCEPHIN [Concomitant]
     Active Substance: CEFTRIAXONE SODIUM
     Dosage: UNK UNK, QD
  12. PIPERACILLIN. [Concomitant]
     Active Substance: PIPERACILLIN SODIUM
     Dosage: UNK

REACTIONS (19)
  - Septic shock [Recovered/Resolved]
  - Escherichia bacteraemia [Recovering/Resolving]
  - Escherichia infection [Recovering/Resolving]
  - Osteomyelitis [Recovering/Resolving]
  - Urinary retention [Recovering/Resolving]
  - Bronchitis [Unknown]
  - Atelectasis [Unknown]
  - Arteriosclerosis [Unknown]
  - Pyrexia [Unknown]
  - Diverticulitis [Recovering/Resolving]
  - Phlebolith [Unknown]
  - Normocytic anaemia [Unknown]
  - Malnutrition [Unknown]
  - Spinal stenosis [Recovering/Resolving]
  - Colitis [Recovering/Resolving]
  - Diverticulum intestinal [Unknown]
  - Joint effusion [Unknown]
  - Rash [Unknown]
  - Acute sinusitis [Recovering/Resolving]

NARRATIVE: CASE EVENT DATE: 2011
